FAERS Safety Report 5604791-3 (Version None)
Quarter: 2008Q1

REPORT INFORMATION
  Report Type: 
  Country: None (occurrence: None)
  Receive Date: 20080128
  Receipt Date: 20070827
  Transmission Date: 20080703
  Serious: Yes (Other)
  Sender: FDA-Public Use
  Company Number: CA-PFIZER INC-2007070004

PATIENT
  Sex: Female

DRUGS (4)
  1. CHANTIX [Suspect]
     Route: 048
     Dates: start: 20070801, end: 20070809
  2. HYDROCHLOROTHIAZIDE [Concomitant]
  3. SYNTHROID [Concomitant]
  4. LITHIUM CARBONATE [Concomitant]

REACTIONS (14)
  - CONVULSION [None]
  - DECREASED APPETITE [None]
  - DYSGEUSIA [None]
  - FALL [None]
  - FEELING COLD [None]
  - HYPERHIDROSIS [None]
  - HYPOAESTHESIA [None]
  - LOSS OF CONSCIOUSNESS [None]
  - MALAISE [None]
  - NAUSEA [None]
  - STOMACH DISCOMFORT [None]
  - SYNCOPE VASOVAGAL [None]
  - TREMOR [None]
  - VOMITING [None]
